FAERS Safety Report 25836628 (Version 2)
Quarter: 2025Q4

REPORT INFORMATION
  Report Type: Spontaneous
  Country: CA (occurrence: CA)
  Receive Date: 20250923
  Receipt Date: 20251008
  Transmission Date: 20260118
  Serious: Yes (Other)
  Sender: NOVARTIS
  Company Number: CA-002147023-NVSC2025CA143987

PATIENT
  Sex: Female

DRUGS (15)
  1. MYFORTIC [Suspect]
     Active Substance: MYCOPHENOLATE SODIUM
     Indication: IgA nephropathy
     Dosage: 720 MG, BID
     Route: 065
     Dates: start: 20240201, end: 20240901
  2. CANDESARTAN [Suspect]
     Active Substance: CANDESARTAN
     Indication: Chronic kidney disease
     Dosage: 32 MG, QD
     Route: 065
  3. CANDESARTAN [Suspect]
     Active Substance: CANDESARTAN
     Indication: Type 2 diabetes mellitus
  4. EZETIMIBE [Suspect]
     Active Substance: EZETIMIBE
     Indication: Chronic kidney disease
     Dosage: 10 MG, QD
     Route: 065
  5. EZETIMIBE [Suspect]
     Active Substance: EZETIMIBE
     Indication: Type 2 diabetes mellitus
  6. GLICLAZIDE [Suspect]
     Active Substance: GLICLAZIDE
     Indication: Chronic kidney disease
     Dosage: 30 MG, QD
     Route: 065
  7. GLICLAZIDE [Suspect]
     Active Substance: GLICLAZIDE
     Indication: Type 2 diabetes mellitus
  8. METFORMIN [Suspect]
     Active Substance: METFORMIN HYDROCHLORIDE
     Indication: Chronic kidney disease
     Dosage: 500 MG, BID
     Route: 065
  9. METFORMIN [Suspect]
     Active Substance: METFORMIN HYDROCHLORIDE
     Indication: Type 2 diabetes mellitus
  10. ROSUVASTATIN [Suspect]
     Active Substance: ROSUVASTATIN
     Indication: Chronic kidney disease
     Dosage: 40 MG, QD
     Route: 065
  11. ROSUVASTATIN [Suspect]
     Active Substance: ROSUVASTATIN
     Indication: Type 2 diabetes mellitus
  12. PREDNISONE [Concomitant]
     Active Substance: PREDNISONE
     Indication: IgA nephropathy
     Dosage: 40 MG, QD
     Route: 065
     Dates: start: 20211005, end: 20220405
  13. EMPAGLIFLOZIN [Concomitant]
     Active Substance: EMPAGLIFLOZIN
     Indication: Product used for unknown indication
     Dosage: 10 MG, QD
     Route: 065
  14. FERROUS FUMARATE [Concomitant]
     Active Substance: FERROUS FUMARATE
     Indication: Product used for unknown indication
     Dosage: 300 MG, TIW
     Route: 065
  15. SEMAGLUTIDE [Concomitant]
     Active Substance: SEMAGLUTIDE
     Indication: Product used for unknown indication
     Dosage: 0.5 MG, QW
     Route: 065

REACTIONS (5)
  - C3 glomerulopathy [Not Recovered/Not Resolved]
  - Proteinuria [Not Recovered/Not Resolved]
  - Inflammation [Not Recovered/Not Resolved]
  - Urine protein/creatinine ratio increased [Not Recovered/Not Resolved]
  - Off label use [Unknown]
